FAERS Safety Report 20557333 (Version 2)
Quarter: 2022Q3

REPORT INFORMATION
  Report Type: Other
  Country: CA (occurrence: CA)
  Receive Date: 20220307
  Receipt Date: 20220707
  Transmission Date: 20221027
  Serious: Yes (Other)
  Sender: FDA-Public Use
  Company Number: CA-CELLTRION INC.-2022CA002427

PATIENT

DRUGS (22)
  1. RITUXIMAB [Suspect]
     Active Substance: RITUXIMAB
     Indication: Retroperitoneal fibrosis
     Dosage: 500 MG 1 EVERY 6 MONTHS
     Route: 042
  2. RITUXIMAB [Suspect]
     Active Substance: RITUXIMAB
     Indication: Hydronephrosis
     Dosage: UNK
     Route: 041
  3. ACETAMINOPHEN [Concomitant]
     Active Substance: ACETAMINOPHEN
  4. ACETAMINOPHEN [Concomitant]
     Active Substance: ACETAMINOPHEN
     Indication: Premedication
     Route: 048
  5. AMITRIPTYLINE [Concomitant]
     Active Substance: AMITRIPTYLINE
  6. AZATHIOPRINE [Concomitant]
     Active Substance: AZATHIOPRINE
  7. BENADRYL [Concomitant]
     Active Substance: DIPHENHYDRAMINE HYDROCHLORIDE
     Indication: Premedication
     Route: 048
  8. EMPAGLIFLOZIN [Concomitant]
     Active Substance: EMPAGLIFLOZIN
  9. HYDROMORPHONE [Concomitant]
     Active Substance: HYDROMORPHONE
  10. INSULIN NOS [Concomitant]
     Active Substance: INSULIN NOS
     Dosage: GLOBULES ORAL
  11. LIRAGLUTIDE [Concomitant]
     Active Substance: LIRAGLUTIDE
  12. MELATONIN [Concomitant]
     Active Substance: MELATONIN
  13. METFORMIN [Concomitant]
     Active Substance: METFORMIN HYDROCHLORIDE
     Route: 065
  14. METRONIDAZOLE [Concomitant]
     Active Substance: METRONIDAZOLE
  15. NAPROXEN [Concomitant]
     Active Substance: NAPROXEN
  16. PANTOPRAZOLE [Concomitant]
     Active Substance: PANTOPRAZOLE
  17. PLANTAGO [PLANTAGO OVATA] [Concomitant]
  18. PRAVASTATIN [Concomitant]
     Active Substance: PRAVASTATIN
  19. SOLU-MEDROL [Concomitant]
     Active Substance: METHYLPREDNISOLONE SODIUM SUCCINATE
     Indication: Premedication
     Route: 065
  20. TADALAFIL [Concomitant]
     Active Substance: TADALAFIL
  21. TAMSULOSIN [Concomitant]
     Active Substance: TAMSULOSIN
  22. VALSARTAN [Concomitant]
     Active Substance: VALSARTAN

REACTIONS (3)
  - Urinary tract infection [Recovered/Resolved]
  - Prostate infection [Recovered/Resolved]
  - Off label use [Unknown]
